FAERS Safety Report 9157140 (Version 1)
Quarter: 2013Q1

REPORT INFORMATION
  Report Type: Spontaneous
  Country: US (occurrence: US)
  Receive Date: 20130312
  Receipt Date: 20130312
  Transmission Date: 20140127
  Serious: Yes (Other)
  Sender: FDA-Public Use
  Company Number: US-PFIZER INC-2013080875

PATIENT
  Age: 66 Year
  Sex: Female
  Weight: 48.53 kg

DRUGS (15)
  1. LYRICA [Suspect]
     Indication: BACK PAIN
     Dosage: 100 MG, AS NEEDED
     Route: 048
     Dates: start: 20130219
  2. LYRICA [Suspect]
     Indication: ARTHRALGIA
  3. LYRICA [Suspect]
     Indication: SCIATICA
  4. DIAZEPAM [Suspect]
     Indication: MUSCLE SPASMS
     Dosage: 0.5 DF, 3X/DAY
     Route: 048
  5. DIAZEPAM [Suspect]
     Dosage: UNKNOWN DOSE AS NEEDED
     Route: 048
  6. BACLOFEN [Suspect]
     Indication: MUSCLE RELAXANT THERAPY
     Dosage: 10 MG, AS NEEDED
     Route: 048
  7. NORCO [Suspect]
     Indication: ARTHRALGIA
     Dosage: 7.5 MG/325 MG
     Route: 048
  8. NORCO [Suspect]
     Indication: BACK PAIN
  9. EXCEDRIN (ASPIRIN/CAFFEINE/PARACETAMOL) [Concomitant]
     Indication: BACK PAIN
     Dosage: 250 MG, UNK
  10. EXCEDRIN (ASPIRIN/CAFFEINE/PARACETAMOL) [Concomitant]
     Indication: ARTHRALGIA
  11. ATROVENT [Concomitant]
     Indication: EMPHYSEMA
     Dosage: UNK
  12. FIORICET [Concomitant]
     Dosage: UNK
  13. ATENOLOL [Concomitant]
     Indication: HYPERTENSION
     Dosage: 50 MG, 1X/DAY
  14. VITAMIN D [Concomitant]
     Dosage: UNK
  15. DOXYLAMINE SUCCINATE [Concomitant]
     Indication: SLEEP DISORDER
     Dosage: UNK

REACTIONS (8)
  - Osteoarthritis [Unknown]
  - Insomnia [Unknown]
  - Intentional drug misuse [Unknown]
  - Dizziness [Unknown]
  - Dysstasia [Unknown]
  - Nausea [Unknown]
  - Drug ineffective [Unknown]
  - Muscle spasms [Unknown]
